FAERS Safety Report 21314439 (Version 1)
Quarter: 2022Q3

REPORT INFORMATION
  Report Type: Spontaneous
  Country: JP (occurrence: JP)
  Receive Date: 20220909
  Receipt Date: 20220909
  Transmission Date: 20221026
  Serious: Yes (Other)
  Sender: FDA-Public Use
  Company Number: JP-SYMBIO-202200393

PATIENT
  Age: 73 Year
  Sex: Female

DRUGS (2)
  1. BENDAMUSTINE HYDROCHLORIDE [Suspect]
     Active Substance: BENDAMUSTINE HYDROCHLORIDE
     Indication: Product used for unknown indication
     Dosage: (ONCE DAILY)
     Route: 041
  2. GAZYVA [Suspect]
     Active Substance: OBINUTUZUMAB
     Indication: Product used for unknown indication
     Dosage: ONCE DAILY)
     Route: 041

REACTIONS (1)
  - Cytomegalovirus chorioretinitis [Unknown]
